FAERS Safety Report 10029469 (Version 2)
Quarter: 2014Q1

REPORT INFORMATION
  Report Type: Report from Study
  Country: JP (occurrence: JP)
  Receive Date: 20140322
  Receipt Date: 20140322
  Transmission Date: 20141002
  Serious: Yes (Other)
  Sender: FDA-Public Use
  Company Number: PHHY2013JP104981

PATIENT
  Age: 30 Year
  Sex: Male

DRUGS (51)
  1. LEPONEX / CLOZARIL [Suspect]
     Indication: SCHIZOPHRENIA, DISORGANISED TYPE
     Dosage: 12.5 MG, UNK
     Route: 048
     Dates: start: 20130522, end: 20130522
  2. LEPONEX / CLOZARIL [Suspect]
     Dosage: 25 MG, UNK
     Route: 048
     Dates: start: 20130523, end: 20130525
  3. LEPONEX / CLOZARIL [Suspect]
     Dosage: 50 MG, UNK
     Route: 048
     Dates: start: 20130526, end: 20130528
  4. LEPONEX / CLOZARIL [Suspect]
     Dosage: 75 MG, UNK
     Route: 048
     Dates: start: 20130529, end: 20130530
  5. LEPONEX / CLOZARIL [Suspect]
     Dosage: 100 MG, UNK
     Route: 048
     Dates: start: 20130531, end: 20130601
  6. LEPONEX / CLOZARIL [Suspect]
     Dosage: 125 MG, UNK
     Route: 048
     Dates: start: 20130602, end: 20130604
  7. LEPONEX / CLOZARIL [Suspect]
     Dosage: 150 MG, UNK
     Route: 048
     Dates: start: 20130605, end: 20130605
  8. LEPONEX / CLOZARIL [Suspect]
     Dosage: 100 MG, UNK
     Route: 048
     Dates: start: 20130606, end: 20130607
  9. LEPONEX / CLOZARIL [Suspect]
     Dosage: 175 MG, UNK
     Route: 048
     Dates: start: 20130608, end: 20130610
  10. LEPONEX / CLOZARIL [Suspect]
     Dosage: 200 MG, QD
     Route: 048
     Dates: start: 20130611
  11. LIMAS [Concomitant]
     Indication: SCHIZOPHRENIA, DISORGANISED TYPE
     Dosage: 800 MG, UNK
     Route: 048
     Dates: start: 20130421
  12. LIMAS [Concomitant]
     Dosage: 1000 MG, UNK
     Route: 048
  13. METLIGINE [Concomitant]
     Dosage: 8 MG, UNK
     Route: 048
     Dates: start: 20130322
  14. METLIGINE [Concomitant]
     Dosage: 9 MG, UNK
     Route: 048
  15. DEPAKENE [Concomitant]
     Dosage: 400 MG, UNK
     Route: 048
     Dates: start: 20130621
  16. BENZALIN [Concomitant]
     Dosage: 10 MG, UNK
     Route: 048
     Dates: start: 20130522
  17. BENZALIN [Concomitant]
     Dosage: 10 MG, UNK
     Route: 048
  18. BENZALIN [Concomitant]
     Dosage: 10 MG, UNK
     Route: 048
  19. BENZALIN [Concomitant]
     Dosage: 10 MG, UNK
     Route: 048
  20. BENZALIN [Concomitant]
     Dosage: 10 MG, UNK
     Route: 048
  21. BENZALIN [Concomitant]
     Dosage: 10 MG, UNK
     Route: 048
  22. BENZALIN [Concomitant]
     Dosage: 10 MG, UNK
     Route: 048
  23. BENZALIN [Concomitant]
     Dosage: 10 MG, UNK
     Route: 048
  24. BENZALIN [Concomitant]
     Dosage: 10 MG, UNK
     Route: 048
  25. BENZALIN [Concomitant]
     Dosage: 10 MG, UNK
     Route: 048
  26. BENZALIN [Concomitant]
     Dosage: 10 MG, UNK
     Route: 048
  27. BENZALIN [Concomitant]
     Dosage: 10 MG, UNK
     Route: 048
  28. BENZALIN [Concomitant]
     Dosage: 10 MG, UNK
     Route: 048
  29. BENZALIN [Concomitant]
     Dosage: 10 MG, UNK
     Route: 048
  30. BENZALIN [Concomitant]
     Dosage: 10 MG, UNK
     Route: 048
  31. BENZALIN [Concomitant]
     Dosage: 10 MG, UNK
  32. BENZALIN [Concomitant]
     Dosage: 10 MG, UNK
     Route: 048
  33. BENZALIN [Concomitant]
     Dosage: 10 MG, UNK
     Route: 048
  34. BENZALIN [Concomitant]
     Dosage: 10 MG, UNK
     Route: 048
  35. BENZALIN [Concomitant]
     Dosage: 10 MG, UNK
     Route: 048
  36. BENZALIN [Concomitant]
     Dosage: 10 MG, UNK
     Route: 048
  37. BENZALIN [Concomitant]
     Dosage: 10 MG, UNK
     Route: 048
  38. BENZALIN [Concomitant]
     Dosage: 10 MG, UNK
     Route: 048
  39. BENZALIN [Concomitant]
     Dosage: 10 MG, UNK
     Route: 048
  40. BENZALIN [Concomitant]
     Dosage: 10 MG, UNK
     Route: 048
     Dates: end: 20131104
  41. LAXOBERON [Concomitant]
     Indication: CONSTIPATION
     Dosage: 5 GTT, UNK
     Route: 048
     Dates: start: 20130523
  42. LAXOBERON [Concomitant]
     Dosage: 10 GTT, UNK
     Route: 048
  43. LAXOBERON [Concomitant]
     Dosage: 10 GTT, UNK
     Route: 048
  44. LAXOBERON [Concomitant]
     Dosage: 10 GTT, UNK
     Route: 048
  45. LAXOBERON [Concomitant]
     Dosage: 10 GTT, UNK
     Route: 048
  46. LAXOBERON [Concomitant]
     Dosage: 15 GTT, UNK
     Route: 048
  47. LAXOBERON [Concomitant]
     Dosage: 10 GTT, UNK
     Route: 048
  48. LAXOBERON [Concomitant]
     Dosage: 15 GTT, UNK
     Route: 048
  49. LAXOBERON [Concomitant]
     Dosage: 15 GTT, UNK
     Route: 048
  50. LAXOBERON [Concomitant]
     Dosage: 15 GTT, UNK
     Route: 048
     Dates: end: 20131102
  51. SOLANAX [Concomitant]
     Dosage: 0.8 MG, UNK
     Route: 048
     Dates: start: 20130628, end: 20130628

REACTIONS (6)
  - Fall [Unknown]
  - Convulsion [Recovered/Resolved]
  - Eye injury [Unknown]
  - C-reactive protein increased [Recovered/Resolved]
  - Blood creatine phosphokinase increased [Recovered/Resolved]
  - Pyrexia [Recovered/Resolved]
